FAERS Safety Report 8294369-8 (Version None)
Quarter: 2012Q2

REPORT INFORMATION
  Report Type: 
  Country: None (occurrence: None)
  Receive Date: 20120418
  Receipt Date: 20120410
  Transmission Date: 20120825
  Serious: Yes (Other)
  Sender: FDA-Public Use
  Company Number: US-GENZYME-POMP-1002137

PATIENT

DRUGS (4)
  1. RECOMBINANT HUMAN ACID ALPHA-GLUCOSIDASE [Concomitant]
     Indication: IMMUNOMODULATORY THERAPY
     Dosage: 10 MG/KG, QD
  2. MYOZYME [Suspect]
     Indication: GLYCOGEN STORAGE DISEASE TYPE II
     Dosage: UNK
     Route: 042
  3. CYCLOPHOSPHAMIDE [Concomitant]
     Indication: IMMUNOMODULATORY THERAPY
     Dosage: UNK
  4. INTRAVENOUS IMMUNOGLOBULINS [Concomitant]
     Indication: IMMUNOMODULATORY THERAPY
     Dosage: UNK
     Route: 042

REACTIONS (2)
  - NEPHRITIS AUTOIMMUNE [None]
  - NEPHROTIC SYNDROME [None]
